FAERS Safety Report 13692810 (Version 1)
Quarter: 2017Q2

REPORT INFORMATION
  Report Type: Report from Study
  Country: JP (occurrence: JP)
  Receive Date: 20170627
  Receipt Date: 20170627
  Transmission Date: 20170830
  Serious: Yes (Other)
  Sender: FDA-Public Use
  Company Number: JP-AMGEN-JPNNI2017097458

PATIENT
  Age: 49 Year
  Sex: Female
  Weight: 57 kg

DRUGS (18)
  1. PEGFILGRASTIM [Suspect]
     Active Substance: PEGFILGRASTIM
     Dosage: 3.6 MG, UNK
     Route: 058
     Dates: start: 20170302, end: 20170302
  2. PEGFILGRASTIM [Suspect]
     Active Substance: PEGFILGRASTIM
     Dosage: 3.6 MG, UNK
     Route: 058
     Dates: start: 20170330, end: 20170330
  3. PEGFILGRASTIM [Suspect]
     Active Substance: PEGFILGRASTIM
     Dosage: 3.6 MG, UNK
     Route: 058
     Dates: start: 20170316, end: 20170316
  4. ADRIACIN [Suspect]
     Active Substance: DOXORUBICIN HYDROCHLORIDE
     Dosage: 60 MG, UNK
     Route: 041
     Dates: start: 20170131, end: 20170131
  5. ADRIACIN [Suspect]
     Active Substance: DOXORUBICIN HYDROCHLORIDE
     Dosage: 60 MG, UNK
     Route: 041
     Dates: start: 20170214, end: 20170214
  6. CYCLOPHOSPHAMIDE MONOHYDRATE [Concomitant]
     Active Substance: CYCLOPHOSPHAMIDE
     Indication: BREAST CANCER
     Dosage: 600 MG, UNK
     Route: 041
     Dates: start: 20170117, end: 20170117
  7. CYCLOPHOSPHAMIDE MONOHYDRATE [Concomitant]
     Active Substance: CYCLOPHOSPHAMIDE
     Dosage: 600 MG, UNK
     Route: 041
     Dates: start: 20170131, end: 20170131
  8. PACLITAXEL. [Concomitant]
     Active Substance: PACLITAXEL
     Dosage: 175 MG, UNK
     Route: 041
     Dates: start: 20170425, end: 20170425
  9. PEGFILGRASTIM [Suspect]
     Active Substance: PEGFILGRASTIM
     Dosage: 3.6 MG, UNK
     Route: 058
     Dates: start: 20170202, end: 20170202
  10. PEGFILGRASTIM [Suspect]
     Active Substance: PEGFILGRASTIM
     Dosage: 3.6 MG, UNK
     Route: 058
     Dates: start: 20170216, end: 20170216
  11. ADRIACIN [Suspect]
     Active Substance: DOXORUBICIN HYDROCHLORIDE
     Indication: BREAST CANCER
     Dosage: 60 MG, UNK
     Route: 041
     Dates: start: 20170117, end: 20170117
  12. CYCLOPHOSPHAMIDE MONOHYDRATE [Concomitant]
     Active Substance: CYCLOPHOSPHAMIDE
     Dosage: 600 MG, UNK
     Route: 041
     Dates: start: 20170214, end: 20170214
  13. PEGFILGRASTIM [Suspect]
     Active Substance: PEGFILGRASTIM
     Indication: COLONY STIMULATING FACTOR PROPHYLAXIS
     Dosage: 3.6 MG, UNK
     Route: 058
     Dates: start: 20170119, end: 20170119
  14. PACLITAXEL. [Concomitant]
     Active Substance: PACLITAXEL
     Indication: BREAST CANCER
     Dosage: 175 MG, UNK
     Route: 041
     Dates: start: 20170314, end: 20170314
  15. PACLITAXEL. [Concomitant]
     Active Substance: PACLITAXEL
     Dosage: 175 MG, UNK
     Route: 041
     Dates: start: 20170328, end: 20170328
  16. CYCLOPHOSPHAMIDE MONOHYDRATE [Concomitant]
     Active Substance: CYCLOPHOSPHAMIDE
     Dosage: 600 MG, UNK
     Route: 041
     Dates: start: 20170228, end: 20170228
  17. PACLITAXEL. [Concomitant]
     Active Substance: PACLITAXEL
     Dosage: 175 MG, UNK
     Route: 041
     Dates: start: 20170411, end: 20170411
  18. ADRIACIN [Suspect]
     Active Substance: DOXORUBICIN HYDROCHLORIDE
     Dosage: 60 MG, UNK
     Route: 041
     Dates: start: 20170228, end: 20170228

REACTIONS (2)
  - Nausea [Recovered/Resolved]
  - Chemotherapy [Unknown]

NARRATIVE: CASE EVENT DATE: 20170119
